FAERS Safety Report 7180659-9 (Version None)
Quarter: 2010Q4

REPORT INFORMATION
  Report Type: 
  Country: None (occurrence: None)
  Receive Date: 20101221
  Receipt Date: 20101206
  Transmission Date: 20110411
  Serious: Yes (Other)
  Sender: FDA-Public Use
  Company Number: CA-PFIZER INC-2010164914

PATIENT
  Age: 75 Year
  Sex: Female
  Weight: 66.213 kg

DRUGS (16)
  1. IBUPROFEN [Suspect]
     Indication: OSTEOARTHRITIS
     Dosage: UNK
     Route: 048
     Dates: start: 20101009, end: 20101027
  2. NAPROXEN [Suspect]
     Indication: OSTEOARTHRITIS
     Dosage: UNK
     Route: 048
     Dates: start: 20101009, end: 20101027
  3. BLINDED *NO SUBJECT DRUG [Suspect]
     Indication: OSTEOARTHRITIS
     Dosage: UNK
     Route: 048
     Dates: start: 20101009, end: 20101027
  4. BLINDED *PLACEBO [Suspect]
     Indication: OSTEOARTHRITIS
     Dosage: UNK
     Route: 048
     Dates: start: 20101009, end: 20101027
  5. CELECOXIB [Suspect]
     Indication: OSTEOARTHRITIS
     Dosage: UNK
     Route: 048
     Dates: start: 20101009, end: 20101027
  6. IBUPROFEN [Suspect]
     Dosage: UNK
     Route: 048
     Dates: start: 20101009, end: 20101027
  7. NAPROXEN [Suspect]
     Dosage: UNK
     Route: 048
     Dates: start: 20101009, end: 20101027
  8. NEXIUM [Concomitant]
     Indication: PROPHYLAXIS
     Dosage: 20 MG, 1X/DAY
     Route: 048
     Dates: start: 20081009
  9. METFORMIN [Concomitant]
     Indication: DIABETES MELLITUS
     Dosage: 1000 MG, 2X/DAY
     Dates: start: 19900101
  10. DETROL LA [Concomitant]
     Indication: HYPERTONIC BLADDER
     Dosage: 4 MG, 1X/DAY
     Dates: start: 20050101
  11. PREMARIN [Concomitant]
     Indication: MENOPAUSE
     Dosage: 0.3 MG, 1X/DAY
     Dates: start: 20000101
  12. CALCIUM [Concomitant]
     Indication: MEDICAL DIET
     Dosage: 333 MG, 1X/DAY
     Dates: start: 20090414
  13. VITAMIN D [Concomitant]
     Indication: MEDICAL DIET
     Dosage: 1000 IU, 1X/DAY
     Dates: start: 20090414
  14. ACTONEL [Concomitant]
     Indication: OSTEOPOROSIS
     Dosage: 140 MG, MONTHLY
     Dates: start: 20090414
  15. MAGNESIUM [Concomitant]
     Indication: MEDICAL DIET
     Dosage: 167 MG, 1X/DAY
     Dates: start: 20090414
  16. DIAMICRON [Concomitant]
     Indication: DIABETES MELLITUS
     Dosage: 30 MG, 3X/DAY
     Dates: start: 20070801

REACTIONS (2)
  - BLOOD IRON DECREASED [None]
  - NEPHROPATHY [None]
